FAERS Safety Report 15703717 (Version 2)
Quarter: 2019Q1

REPORT INFORMATION
  Report Type: Report from Study
  Country: JP (occurrence: JP)
  Receive Date: 20181210
  Receipt Date: 20190215
  Transmission Date: 20190417
  Serious: Yes (Hospitalization)
  Sender: FDA-Public Use
  Company Number: JP-EISAI MEDICAL RESEARCH-EC-2018-048790

PATIENT
  Age: 93 Year
  Sex: Female
  Weight: 55 kg

DRUGS (12)
  1. FOSTOIN [Suspect]
     Active Substance: FOSPHENYTOIN SODIUM
     Indication: PARTIAL SEIZURES
     Route: 041
     Dates: start: 20171201, end: 20171201
  2. FYCOMPA [Suspect]
     Active Substance: PERAMPANEL
     Indication: PARTIAL SEIZURES
     Route: 048
     Dates: start: 20171128, end: 20171204
  3. E KEPPRA [Suspect]
     Active Substance: LEVETIRACETAM
     Indication: PARTIAL SEIZURES
     Route: 048
     Dates: start: 20171127
  4. DEPAKENE-R [Suspect]
     Active Substance: VALPROATE SODIUM
     Indication: PARTIAL SEIZURES
     Route: 048
     Dates: end: 20171127
  5. PHENOBAL [Suspect]
     Active Substance: PHENOBARBITAL
     Indication: PARTIAL SEIZURES
     Route: 048
     Dates: start: 20171126, end: 20171126
  6. FYCOMPA [Suspect]
     Active Substance: PERAMPANEL
     Route: 048
     Dates: start: 20171205, end: 20171211
  7. EXCEGRAN [Suspect]
     Active Substance: ZONISAMIDE
     Indication: PARTIAL SEIZURES
     Route: 048
     Dates: start: 20171207, end: 20171208
  8. CERCINE [Concomitant]
     Active Substance: DIAZEPAM
  9. FYCOMPA [Suspect]
     Active Substance: PERAMPANEL
     Route: 048
     Dates: start: 20171212, end: 20171221
  10. FOSTOIN [Suspect]
     Active Substance: FOSPHENYTOIN SODIUM
     Route: 041
     Dates: start: 20171202, end: 20171211
  11. PHENOBAL [Suspect]
     Active Substance: PHENOBARBITAL
     Route: 048
     Dates: start: 20171128, end: 20171201
  12. FYCOMPA [Suspect]
     Active Substance: PERAMPANEL
     Route: 048
     Dates: start: 20171222

REACTIONS (2)
  - Hepatic function abnormal [Recovered/Resolved]
  - Cardiac failure congestive [Recovered/Resolved]

NARRATIVE: CASE EVENT DATE: 201712
